FAERS Safety Report 5469997-5 (Version None)
Quarter: 2007Q3

REPORT INFORMATION
  Report Type: 
  Country: None (occurrence: None)
  Receive Date: 20070927
  Receipt Date: 20070115
  Transmission Date: 20080115
  Serious: No
  Sender: FDA-Public Use
  Company Number: US-AMGEN-KDL194289

PATIENT
  Sex: Male

DRUGS (11)
  1. NEUPOGEN [Suspect]
     Indication: HIV INFECTION
     Route: 058
     Dates: start: 20050901, end: 20060812
  2. NORVIR [Concomitant]
     Route: 065
  3. INVIRASE [Concomitant]
     Route: 065
  4. COLACE [Concomitant]
     Route: 065
  5. PROZAC [Concomitant]
     Route: 065
  6. KLONOPIN [Concomitant]
     Route: 065
  7. TRAZODONE HCL [Concomitant]
     Route: 065
  8. EFFEXOR [Concomitant]
     Route: 065
  9. SPORANOX [Concomitant]
     Route: 065
  10. PREVACID [Concomitant]
     Route: 065
  11. FLORINEF [Concomitant]
     Route: 065

REACTIONS (1)
  - INJECTION SITE PAIN [None]
